FAERS Safety Report 6057762-X (Version None)
Quarter: 2009Q1

REPORT INFORMATION
  Report Type: 
  Country: None (occurrence: None)
  Receive Date: 20090129
  Receipt Date: 20090123
  Transmission Date: 20090719
  Serious: Yes (Other)
  Sender: FDA-Public Use
  Company Number: BE-ABBOTT-08P-013-0486355-00

PATIENT
  Sex: Female

DRUGS (12)
  1. HUMIRA [Suspect]
     Indication: RHEUMATOID ARTHRITIS
     Dates: start: 20060627, end: 20080729
  2. TENORMIN [Concomitant]
     Indication: DRUG USE FOR UNKNOWN INDICATION
  3. ATEPHAR [Concomitant]
     Indication: DRUG USE FOR UNKNOWN INDICATION
  4. PPI (NOS) [Concomitant]
     Indication: DRUG USE FOR UNKNOWN INDICATION
  5. LEDERTREXATE [Concomitant]
     Indication: DRUG USE FOR UNKNOWN INDICATION
  6. LEDERTREXATE [Concomitant]
  7. FOLIC ACID [Concomitant]
     Indication: DRUG USE FOR UNKNOWN INDICATION
  8. CA AND VIT D [Concomitant]
     Indication: DRUG USE FOR UNKNOWN INDICATION
  9. ASPIRIN [Concomitant]
     Indication: DRUG USE FOR UNKNOWN INDICATION
  10. AZOPT AND XALATAN [Concomitant]
     Indication: GLAUCOMA
  11. DAFALGAN [Concomitant]
     Indication: DRUG USE FOR UNKNOWN INDICATION
  12. BRUFEN [Concomitant]
     Indication: DRUG USE FOR UNKNOWN INDICATION

REACTIONS (4)
  - ARTHRALGIA [None]
  - LIVER FUNCTION TEST ABNORMAL [None]
  - LYMPHADENOPATHY [None]
  - MUSCULOSKELETAL STIFFNESS [None]
